FAERS Safety Report 23500245 (Version 2)
Quarter: 2024Q1

REPORT INFORMATION
  Report Type: Spontaneous
  Country: CA (occurrence: CA)
  Receive Date: 20240208
  Receipt Date: 20240307
  Transmission Date: 20240410
  Serious: Yes (Hospitalization, Other)
  Sender: FDA-Public Use
  Company Number: CA-CELLTRION INC.-2023CA024605

PATIENT

DRUGS (4)
  1. INFLECTRA [Suspect]
     Active Substance: INFLIXIMAB-DYYB
     Indication: Neurosarcoidosis
     Dosage: 5 MG/KG, 0, 2, 6, WEEKS, THEN EVERY 4 WEEKS
     Route: 042
     Dates: start: 20240117
  2. INFLECTRA [Suspect]
     Active Substance: INFLIXIMAB-DYYB
     Dosage: 455.5 MG, 0, 2, 6, WEEKS, THEN EVERY 4 WEEKS (SUPPOSED TO RECEIVED 575 MG (5MG/KG))
     Route: 042
     Dates: start: 20240131
  3. INFLECTRA [Suspect]
     Active Substance: INFLIXIMAB-DYYB
     Dosage: 455.5 MG, 0, 2, 6, WEEKS, THEN EVERY 4 WEEKS (SUPPOSED TO RECEIVED 575 MG (5MG/KG))
     Route: 042
     Dates: start: 20240131
  4. INFLECTRA [Suspect]
     Active Substance: INFLIXIMAB-DYYB
     Dosage: 575 MG, 0, 2, 6, WEEKS, THEN EVERY 4 WEEKS
     Route: 042
     Dates: start: 20240228

REACTIONS (5)
  - Oedema peripheral [Recovered/Resolved]
  - Weight increased [Recovering/Resolving]
  - Fatigue [Not Recovered/Not Resolved]
  - Off label use [Unknown]
  - Incorrect dose administered [Unknown]

NARRATIVE: CASE EVENT DATE: 20240131
